FAERS Safety Report 8435154-3 (Version None)
Quarter: 2012Q2

REPORT INFORMATION
  Report Type: 
  Country: None (occurrence: None)
  Receive Date: 20120614
  Receipt Date: 20120605
  Transmission Date: 20120825
  Serious: Yes (Other)
  Sender: FDA-Public Use
  Company Number: US-BAYER-2012-021755

PATIENT
  Age: 33 Year
  Sex: Female
  Weight: 96.599 kg

DRUGS (13)
  1. IBUPROFEN [Concomitant]
     Dosage: UNK
     Dates: start: 20000101
  2. MULTI-VITAMINS [Concomitant]
     Dosage: UNK
     Dates: start: 20090101
  3. LEUCOVORIN CALCIUM [Concomitant]
     Dosage: UNK
     Dates: start: 20090101, end: 20100101
  4. LEUCOVORIN CALCIUM [Concomitant]
     Dosage: UNK
     Dates: start: 20060101, end: 20070101
  5. NAPROXEN (ALEVE) [Concomitant]
     Dosage: UNK
     Dates: start: 20000101
  6. ADVIL [Concomitant]
     Dosage: UNK
     Dates: start: 20000101
  7. MULTI-VITAMINS [Concomitant]
     Dosage: UNK
     Dates: start: 20060101, end: 20070101
  8. YASMIN [Suspect]
  9. DROSPIRENONE AND ETHINYL ESTRADIOL [Suspect]
     Indication: CONTRACEPTION
     Dosage: UNK
     Dates: start: 20090219, end: 20090410
  10. SYNTHROID [Concomitant]
     Indication: HYPOTHYROIDISM
     Dosage: UNK
     Dates: start: 20000101
  11. VITAMIN D [Concomitant]
  12. ADIPEX [Concomitant]
  13. YAZ [Suspect]

REACTIONS (3)
  - PAIN [None]
  - DEEP VEIN THROMBOSIS [None]
  - MYALGIA [None]
